FAERS Safety Report 6644210-1 (Version None)
Quarter: 2010Q1

REPORT INFORMATION
  Report Type: 
  Country: None (occurrence: None)
  Receive Date: 20100322
  Receipt Date: 20100309
  Transmission Date: 20100710
  Serious: No
  Sender: FDA-Public Use
  Company Number: US-B.I. PHARMACEUTICALS,INC./RIDGEFIELD-2010-BP-02245BP

PATIENT
  Sex: Female

DRUGS (12)
  1. SPIRIVA [Suspect]
     Indication: CHRONIC OBSTRUCTIVE PULMONARY DISEASE
     Dosage: 18 MCG
     Route: 055
     Dates: start: 20040101
  2. SPIRIVA [Suspect]
     Indication: EMPHYSEMA
  3. SPIRIVA [Suspect]
     Indication: ASTHMA
  4. SINGULAIR [Concomitant]
     Dosage: 10 MG
  5. ALBUTEROL SULFATE AUTOHALER [Concomitant]
  6. ZOLPIDEM [Concomitant]
  7. VITAMINS [Concomitant]
  8. CALCIUM [Concomitant]
  9. VITAMIN C [Concomitant]
  10. B COMPLEX VITAMINS [Concomitant]
  11. MAGNESIUM [Concomitant]
  12. LUTEIN [Concomitant]

REACTIONS (1)
  - DYSGEUSIA [None]
